FAERS Safety Report 6377560-7 (Version None)
Quarter: 2009Q3

REPORT INFORMATION
  Report Type: 
  Country: None (occurrence: None)
  Receive Date: 20090925
  Receipt Date: 20090918
  Transmission Date: 20100115
  Serious: Yes (Hospitalization)
  Sender: FDA-Public Use
  Company Number: JP-ABBOTT-09P-087-0565181-00

PATIENT
  Sex: Female
  Weight: 44.6 kg

DRUGS (13)
  1. HUMIRA [Suspect]
     Indication: RHEUMATOID ARTHRITIS
     Route: 058
     Dates: start: 20081211, end: 20090220
  2. METHOTREXATE [Concomitant]
     Indication: RHEUMATOID ARTHRITIS
     Dates: start: 19961001
  3. STEROID [Concomitant]
     Indication: DRUG USE FOR UNKNOWN INDICATION
  4. PREDNISOLONE [Concomitant]
     Indication: RHEUMATOID ARTHRITIS
     Route: 048
     Dates: end: 20090315
  5. SODIUM RISEDRONATE HYDRATE [Concomitant]
     Indication: OSTEOPOROSIS
  6. LOXOPROFEN SODIUM HYDRATE [Concomitant]
     Indication: RHEUMATOID ARTHRITIS
  7. MULTIPLE VITAMINS [Concomitant]
     Indication: HYPOVITAMINOSIS
     Route: 048
  8. FOLIC ACID [Concomitant]
     Indication: RHEUMATOID ARTHRITIS
     Route: 048
  9. LANSOPRAZOLE [Concomitant]
     Indication: GASTRIC ULCER
     Route: 048
  10. MINOCYCLINE HYDROCHLORIDE [Concomitant]
     Indication: ARTHRITIS BACTERIAL
     Route: 048
     Dates: start: 20080527
  11. NIFEDIPINE [Concomitant]
     Indication: HYPERTENSION
     Route: 048
  12. VALSARTAN [Concomitant]
     Indication: HYPERTENSION
     Route: 048
  13. DIFENIDOL HYDROCHLORIDE [Concomitant]
     Indication: DIZZINESS

REACTIONS (2)
  - LEUKOCYTOCLASTIC VASCULITIS [None]
  - VASCULITIS [None]
